FAERS Safety Report 5807148-5 (Version None)
Quarter: 2008Q3

REPORT INFORMATION
  Report Type: 
  Country: None (occurrence: None)
  Receive Date: 20080709
  Receipt Date: 20080709
  Transmission Date: 20090109
  Serious: No
  Sender: FDA-Public Use
  Company Number: None

PATIENT
  Age: 39 Year
  Sex: Male
  Weight: 79.3795 kg

DRUGS (1)
  1. LEVAQUIN [Suspect]
     Indication: POSTOPERATIVE CARE
     Dosage: 1 PER DAY PO  (DURATION: 6-7 DAYS)
     Route: 048

REACTIONS (1)
  - TENDON PAIN [None]
